FAERS Safety Report 6033298-7 (Version None)
Quarter: 2009Q1

REPORT INFORMATION
  Report Type: 
  Country: None (occurrence: None)
  Receive Date: 20090109
  Receipt Date: 20090108
  Transmission Date: 20090719
  Serious: Yes (Life-Threatening, Other)
  Sender: FDA-Public Use
  Company Number: US-ASTRAZENECA-2008UW26786

PATIENT
  Age: 65 Year
  Sex: Female
  Weight: 74.8 kg

DRUGS (9)
  1. ACCOLATE [Suspect]
     Indication: CAPSULAR CONTRACTURE ASSOCIATED WITH BREAST IMPLANT
     Dosage: DAILY
     Route: 048
     Dates: start: 20081119, end: 20081120
  2. DIOVAN HCT [Concomitant]
  3. XANAX [Concomitant]
     Dosage: 1-2 DAILY PRN
  4. VYTORIN [Concomitant]
  5. LEXAPRO [Concomitant]
  6. FEMARA [Concomitant]
  7. MULTI-VITAMINS [Concomitant]
  8. CALCIUM W/VITAMIN D [Concomitant]
  9. COQ10 [Concomitant]

REACTIONS (4)
  - ANGIOEDEMA [None]
  - OBSTRUCTIVE AIRWAYS DISORDER [None]
  - OFF LABEL USE [None]
  - TONGUE DISCOLOURATION [None]
